FAERS Safety Report 18141666 (Version 2)
Quarter: 2022Q4

REPORT INFORMATION
  Report Type: Spontaneous
  Country: DE (occurrence: DE)
  Receive Date: 20200812
  Receipt Date: 20221020
  Transmission Date: 20230112
  Serious: Yes (Hospitalization)
  Sender: FDA-Public Use
  Company Number: DE-NOVARTISPH-NVSC2020DE222476

PATIENT
  Age: 58 Year
  Sex: Female

DRUGS (4)
  1. OXALIPLATIN [Suspect]
     Active Substance: OXALIPLATIN
     Indication: Product used for unknown indication
     Dosage: NK MG, LETZTE 27122019
     Route: 065
     Dates: start: 20191227
  2. PANITUMUMAB [Suspect]
     Active Substance: PANITUMUMAB
     Indication: Product used for unknown indication
     Dosage: NK MG, LETZTE 27122019
     Route: 065
     Dates: start: 20191227
  3. ONDANSETRON [Concomitant]
     Active Substance: ONDANSETRON
     Indication: Product used for unknown indication
     Dosage: 8 MG, BEI BEDARF
     Route: 048
  4. METAMIZOLE [Concomitant]
     Active Substance: METAMIZOLE
     Indication: Product used for unknown indication
     Dosage: 500 MG, IF NECESSORY, DROPS
     Route: 048

REACTIONS (5)
  - General physical health deterioration [Unknown]
  - Localised infection [Recovering/Resolving]
  - Haematuria [Unknown]
  - Anaemia [Unknown]
  - Urinary tract infection [Unknown]
